FAERS Safety Report 7263965-9 (Version None)
Quarter: 2011Q1

REPORT INFORMATION
  Report Type: 
  Country: None (occurrence: None)
  Receive Date: 20110130
  Receipt Date: 20101029
  Transmission Date: 20110831
  Serious: No
  Sender: FDA-Public Use
  Company Number: US-ABBOTT-10P-163-0682524-00

PATIENT
  Sex: Female
  Weight: 69.916 kg

DRUGS (9)
  1. ESTROGENIC SUBSTANCE [Concomitant]
     Indication: HORMONE REPLACEMENT THERAPY
     Route: 048
  2. ACTOPLUS MET [Concomitant]
     Indication: DIABETES MELLITUS
     Route: 048
  3. LOSART [Concomitant]
     Indication: HYPERTENSION
     Route: 048
  4. HUMIRA [Suspect]
     Indication: RHEUMATOID ARTHRITIS
     Route: 058
     Dates: start: 20100501
  5. PREDNISONE [Concomitant]
     Indication: IRITIS
     Dosage: 1OU D
     Route: 047
  6. PREDNISONE [Concomitant]
     Indication: PRODUCT USED FOR UNKNOWN INDICATION
     Route: 048
  7. SEROQUEL [Concomitant]
     Indication: INSOMNIA
     Route: 048
  8. METOPROLOL [Concomitant]
     Indication: HYPERTENSION
     Route: 048
  9. DIAZEPAM [Concomitant]
     Indication: NERVOUSNESS
     Route: 048

REACTIONS (8)
  - EYE PAIN [None]
  - HAEMORRHOIDS [None]
  - GASTRIC DISORDER [None]
  - ARTHRALGIA [None]
  - HAEMATOCHEZIA [None]
  - ABDOMINAL PAIN [None]
  - OCULAR HYPERAEMIA [None]
  - PHOTOSENSITIVITY REACTION [None]
